FAERS Safety Report 5745814-0 (Version None)
Quarter: 2008Q2

REPORT INFORMATION
  Report Type: 
  Country: None (occurrence: None)
  Receive Date: 20080521
  Receipt Date: 20080509
  Transmission Date: 20081010
  Serious: Yes (Death)
  Sender: FDA-Public Use
  Company Number: DK-GENENTECH-257975

PATIENT
  Sex: Female

DRUGS (3)
  1. BEVACIZUMAB [Suspect]
     Indication: GLIOBLASTOMA
     Dosage: 650 MG, Q2W
     Route: 042
     Dates: start: 20070718
  2. CETUXIMAB [Suspect]
     Indication: GLIOBLASTOMA
     Dosage: 425 MG, 1/WEEK
     Route: 042
     Dates: start: 20070718
  3. IRINOTECAN HCL [Suspect]
     Indication: GLIOBLASTOMA
     Dosage: 215 MG, Q14D
     Route: 042

REACTIONS (1)
  - DEATH [None]
